FAERS Safety Report 18296541 (Version 2)
Quarter: 2021Q3

REPORT INFORMATION
  Report Type: Spontaneous
  Country: US (occurrence: US)
  Receive Date: 20200922
  Receipt Date: 20210714
  Transmission Date: 20211014
  Serious: No
  Sender: FDA-Public Use
  Company Number: US-GLENMARK PHARMACEUTICALS-2020GMK048872

PATIENT

DRUGS (2)
  1. ONDANSETRON TABLETS USP [Suspect]
     Active Substance: ONDANSETRON
     Indication: PROPHYLAXIS OF NAUSEA AND VOMITING
     Dosage: 24 MILLIGRAM, QD (3 PILLS A DAY)
     Route: 048
  2. ZOFRAN [Suspect]
     Active Substance: ONDANSETRON HYDROCHLORIDE
     Indication: PROPHYLAXIS OF NAUSEA AND VOMITING
     Dosage: UNK
     Route: 042

REACTIONS (5)
  - Gastric disorder [Unknown]
  - Constipation [Unknown]
  - Product use in unapproved indication [Unknown]
  - Illness [Unknown]
  - Abdominal pain upper [Unknown]
